FAERS Safety Report 9759670 (Version 1)
Quarter: 2013Q4

REPORT INFORMATION
  Report Type: Spontaneous
  Country: US (occurrence: US)
  Receive Date: 20131216
  Receipt Date: 20131216
  Transmission Date: 20140711
  Serious: No
  Sender: FDA-Public Use
  Company Number: US-GILEAD-2010-0028602

PATIENT
  Age: 74 Year
  Sex: Female

DRUGS (16)
  1. LETAIRIS [Suspect]
     Route: 048
     Dates: start: 20100323, end: 20100406
  2. NITROGLYCERIN [Concomitant]
  3. FELODIPINE [Concomitant]
  4. ASPIRIN [Concomitant]
  5. NEOMYCIN [Concomitant]
  6. NAFTIN [Concomitant]
  7. ALBUTEROL [Concomitant]
  8. TORSEMIDE [Concomitant]
  9. COZAAR [Concomitant]
  10. POTASSIUM CHLORIDE [Concomitant]
  11. PROTOPIC [Concomitant]
  12. ZOLPIDEM [Concomitant]
  13. OMEPRAZOLE [Concomitant]
  14. MELOXICAM [Concomitant]
  15. CENTRUM [Concomitant]
  16. FLUTICASONE [Concomitant]

REACTIONS (1)
  - Fluid overload [Recovered/Resolved]
